FAERS Safety Report 4550952-4 (Version None)
Quarter: 2004Q4

REPORT INFORMATION
  Report Type: 
  Country: None (occurrence: None)
  Receive Date: 20041217
  Receipt Date: 20040803
  Transmission Date: 20050328
  Serious: No
  Sender: FDA-Public Use
  Company Number: 2004-BP-06461BP

PATIENT
  Age: 63 Year
  Sex: Female

DRUGS (6)
  1. SPIRIVA [Suspect]
     Indication: BRONCHIECTASIS
     Dosage: 18 MCG (18 MCG), IH
     Route: 055
     Dates: start: 20040715, end: 20040725
  2. SPIRIVA [Suspect]
  3. PREDNISONE [Concomitant]
  4. FOSAMAX [Concomitant]
  5. CIPROFLOXACIN [Concomitant]
  6. DOXYCYCLINE [Concomitant]

REACTIONS (2)
  - BONE PAIN [None]
  - INFLUENZA [None]
